FAERS Safety Report 15894008 (Version 3)
Quarter: 2019Q1

REPORT INFORMATION
  Report Type: Report from Study
  Country: ES (occurrence: ES)
  Receive Date: 20190131
  Receipt Date: 20190215
  Transmission Date: 20190417
  Serious: Yes (Other)
  Sender: FDA-Public Use
  Company Number: ES-ACCORD-104151

PATIENT
  Age: 83 Year
  Sex: Female

DRUGS (11)
  1. UNIKET [Concomitant]
     Active Substance: ISOSORBIDE MONONITRATE
     Route: 048
  2. FERROSANOL [Concomitant]
     Active Substance: FERROUS GLUCONATE
  3. ALDOCUMAR [Interacting]
     Active Substance: WARFARIN SODIUM
     Indication: ATRIAL FIBRILLATION
     Dosage: 1 AND 1/2 TABLET PER DAY OF 3 MG EXCEPT TUESDAY, THURSDAY AND?SATURDAY 1 TABLET
     Route: 048
     Dates: start: 2014, end: 20170920
  4. HIGROTONA [Concomitant]
     Active Substance: CHLORTHALIDONE
     Route: 048
  5. EMCONCOR [Concomitant]
     Active Substance: BISOPROLOL FUMARATE
     Route: 048
  6. SEGURIL [Concomitant]
     Active Substance: FUROSEMIDE
     Route: 048
  7. LORAZEPAM. [Concomitant]
     Active Substance: LORAZEPAM
  8. TRAJENTA [Concomitant]
     Active Substance: LINAGLIPTIN
     Route: 048
  9. QUETIAPINE. [Suspect]
     Active Substance: QUETIAPINE
     Indication: PRODUCT USED FOR UNKNOWN INDICATION
     Route: 048
     Dates: start: 2017
  10. OMEPRAZOLE. [Interacting]
     Active Substance: OMEPRAZOLE
     Indication: PRODUCT USED FOR UNKNOWN INDICATION
     Dates: start: 2017
  11. PAROXETINE. [Interacting]
     Active Substance: PAROXETINE
     Indication: PRODUCT USED FOR UNKNOWN INDICATION
     Route: 048
     Dates: start: 2017

REACTIONS (2)
  - Drug interaction [Unknown]
  - Iron deficiency anaemia [Recovering/Resolving]

NARRATIVE: CASE EVENT DATE: 2017
